FAERS Safety Report 18815101 (Version 1)
Quarter: 2021Q1

REPORT INFORMATION
  Report Type: Spontaneous
  Country: US (occurrence: US)
  Receive Date: 20210130
  Receipt Date: 20210130
  Transmission Date: 20210419
  Serious: Yes (Other)
  Sender: FDA-Public Use
  Company Number: None

PATIENT
  Sex: Male
  Weight: 66.15 kg

DRUGS (16)
  1. BIOTIN/CALCIUM/VIT D3 [Concomitant]
  2. FINASTERIDE. [Concomitant]
     Active Substance: FINASTERIDE
  3. VITAMIN B12 [Concomitant]
     Active Substance: CYANOCOBALAMIN
  4. MECLIZINE [Concomitant]
     Active Substance: MECLIZINE HYDROCHLORIDE
  5. TRAMADOL. [Concomitant]
     Active Substance: TRAMADOL
  6. DENOSUMAB [Concomitant]
     Active Substance: DENOSUMAB
  7. MEMANTINE. [Concomitant]
     Active Substance: MEMANTINE
  8. PREDNISONE. [Concomitant]
     Active Substance: PREDNISONE
  9. PANTOPRAZOLE [Concomitant]
     Active Substance: PANTOPRAZOLE
  10. DONEPEZIL. [Concomitant]
     Active Substance: DONEPEZIL
  11. ABIRATERONE. [Suspect]
     Active Substance: ABIRATERONE ACETATE
     Indication: PROSTATE CANCER
     Dates: start: 20201209
  12. CLOPIDOGREL [Concomitant]
     Active Substance: CLOPIDOGREL BISULFATE
  13. GABAPENTIN. [Concomitant]
     Active Substance: GABAPENTIN
  14. LUPRON [Concomitant]
     Active Substance: LEUPROLIDE ACETATE
  15. ZETIA [Concomitant]
     Active Substance: EZETIMIBE
  16. DILTIAZEM. [Concomitant]
     Active Substance: DILTIAZEM

REACTIONS (1)
  - Hospice care [None]
